FAERS Safety Report 12699300 (Version 2)
Quarter: 2016Q3

REPORT INFORMATION
  Report Type: Report from Study
  Country: US (occurrence: US)
  Receive Date: 20160830
  Receipt Date: 20160912
  Transmission Date: 20161109
  Serious: Yes (Death, Hospitalization, Other)
  Sender: FDA-Public Use
  Company Number: US-BAYER-2016-163558

PATIENT
  Age: 51 Year
  Sex: Male
  Weight: 87.8 kg

DRUGS (2)
  1. NAPROXEN. [Suspect]
     Active Substance: NAPROXEN
     Dosage: TWO EMPTY BOTTLES OF NAPROXEN
  2. CHLORDIAZEPOXIDE. [Concomitant]
     Active Substance: CHLORDIAZEPOXIDE
     Dosage: UNK (0.37 MG/L)

REACTIONS (7)
  - Completed suicide [Fatal]
  - Overdose [None]
  - Coma [None]
  - Cardiac arrest [Fatal]
  - Toxicity to various agents [Fatal]
  - Pneumonia [None]
  - Alcohol poisoning [None]
